FAERS Safety Report 9354873 (Version 1)
Quarter: 2013Q2

REPORT INFORMATION
  Report Type: Spontaneous
  Country: US (occurrence: None)
  Receive Date: 20130618
  Receipt Date: 20130618
  Transmission Date: 20140414
  Serious: Yes (Other)
  Sender: FDA-Public Use
  Company Number: None

PATIENT
  Age: 54 Year
  Sex: Female

DRUGS (6)
  1. TECFIDERA [Suspect]
     Indication: MULTIPLE SCLEROSIS
     Dosage: TECIFDERA 1-5 WEEKS
     Route: 048
  2. PREDNISONE [Concomitant]
  3. FLUOXETINE [Concomitant]
  4. STOOL SOFTENER [Concomitant]
  5. IBUPROFEN [Concomitant]
  6. FLUTICASONE [Concomitant]

REACTIONS (5)
  - Influenza like illness [None]
  - Headache [None]
  - Myalgia [None]
  - Fatigue [None]
  - Abdominal discomfort [None]
